FAERS Safety Report 10510115 (Version 2)
Quarter: 2014Q4

REPORT INFORMATION
  Report Type: Spontaneous
  Country: US (occurrence: US)
  Receive Date: 20141010
  Receipt Date: 20141023
  Transmission Date: 20150528
  Serious: Yes (Hospitalization, Other)
  Sender: FDA-Public Use
  Company Number: US-MERCK-1410USA002087

PATIENT
  Age: 46 Year
  Sex: Male

DRUGS (1)
  1. PEGINTRON [Suspect]
     Active Substance: PEGINTERFERON ALFA-2B
     Indication: HEPATITIS C
     Dosage: 150 MICROGRAM, QW
     Route: 058
     Dates: start: 20140425, end: 20140620

REACTIONS (9)
  - Cerebrovascular accident [Unknown]
  - Oncologic complication [Unknown]
  - Lethargy [Unknown]
  - Musculoskeletal stiffness [Unknown]
  - Nervous system disorder [Unknown]
  - Vision blurred [Unknown]
  - Blindness [Recovered/Resolved]
  - Muscular weakness [Unknown]
  - Pyrexia [Unknown]

NARRATIVE: CASE EVENT DATE: 2014
